FAERS Safety Report 18500542 (Version 2)
Quarter: 2020Q4

REPORT INFORMATION
  Report Type: Spontaneous
  Country: ES (occurrence: ES)
  Receive Date: 20201113
  Receipt Date: 20201130
  Transmission Date: 20210114
  Serious: Yes (Hospitalization, Other)
  Sender: FDA-Public Use
  Company Number: ES-AUROBINDO-AUR-APL-2020-055825

PATIENT
  Age: 75 Year
  Sex: Male

DRUGS (17)
  1. FENDIVIA [Suspect]
     Active Substance: FENTANYL
     Indication: PAIN MANAGEMENT
     Dosage: 12 MICROGRAM
     Route: 065
  2. FENDIVIA [Suspect]
     Active Substance: FENTANYL
     Indication: NEURALGIA
     Dosage: UNK (ON-DEMAND INTRANASAL FENTANYL ADMINISTERED BY THE PATIENT HIMSELF)
     Route: 045
  3. PREGABALIN. [Suspect]
     Active Substance: PREGABALIN
     Indication: PAIN MANAGEMENT
     Dosage: 75 MILLIGRAM, EVERY HOUR
     Route: 065
  4. OXYNORM [Suspect]
     Active Substance: OXYCODONE HYDROCHLORIDE
     Dosage: 60 MILLIGRAM, ONCE A DAY (CONTINUOUS INFUSION PUMP)
     Route: 065
  5. ATEZOLIZUMAB. [Concomitant]
     Active Substance: ATEZOLIZUMAB
     Indication: LUNG ADENOCARCINOMA STAGE III
     Dosage: UNK
     Route: 065
  6. OXYNORM [Suspect]
     Active Substance: OXYCODONE HYDROCHLORIDE
     Dosage: UNK
     Route: 065
  7. MORPHINE SULFATE. [Suspect]
     Active Substance: MORPHINE SULFATE
     Indication: NEURALGIA
  8. ACIDO ZOLEDRONICO [Concomitant]
     Active Substance: ZOLEDRONIC ACID
     Indication: METASTASES TO BONE
     Dosage: UNK
     Route: 065
  9. OXYNORM [Suspect]
     Active Substance: OXYCODONE HYDROCHLORIDE
     Indication: NEURALGIA
     Dosage: 130 MILLIGRAM, ONCE A DAY
     Route: 065
  10. DEXAMETASONA [Suspect]
     Active Substance: DEXAMETHASONE
     Indication: PAIN MANAGEMENT
     Dosage: 4 MILLIGRAM, ONCE A DAY
     Route: 065
  11. METAMIZOLE [Suspect]
     Active Substance: METAMIZOLE
     Indication: NEURALGIA
  12. PARACETAMOL [Suspect]
     Active Substance: ACETAMINOPHEN
     Indication: NEURALGIA
  13. METAMIZOLE [Suspect]
     Active Substance: METAMIZOLE
     Indication: PAIN MANAGEMENT
     Dosage: UNK, 3 TIMES A DAY
     Route: 065
  14. DEXAMETASONA [Suspect]
     Active Substance: DEXAMETHASONE
     Indication: NEURALGIA
     Dosage: 8 MILLIGRAM, BOLUS
     Route: 065
  15. PARACETAMOL [Suspect]
     Active Substance: ACETAMINOPHEN
     Indication: PAIN MANAGEMENT
     Dosage: UNK, 3 TIMES A DAY
     Route: 065
  16. PREGABALIN. [Suspect]
     Active Substance: PREGABALIN
     Indication: NEURALGIA
     Dosage: 75 MILLIGRAM, 3 TIMES A DAY
     Route: 048
  17. MORPHINE SULFATE. [Suspect]
     Active Substance: MORPHINE SULFATE
     Indication: PAIN MANAGEMENT
     Dosage: 4 MILLIGRAM, EVERY FOUR HOUR
     Route: 065

REACTIONS (4)
  - Pain [Recovered/Resolved]
  - Insomnia [Not Recovered/Not Resolved]
  - Toxicity to various agents [Unknown]
  - Anxiety [Unknown]
